FAERS Safety Report 10474072 (Version 2)
Quarter: 2014Q4

REPORT INFORMATION
  Report Type: Spontaneous
  Country: ZA (occurrence: ZA)
  Receive Date: 20140924
  Receipt Date: 20141015
  Transmission Date: 20150528
  Serious: Yes (Congenital Anomaly, Other)
  Sender: FDA-Public Use
  Company Number: ZA-GLAXOSMITHKLINE-B1036366A

PATIENT
  Sex: Female

DRUGS (3)
  1. LAMICTIN [Suspect]
     Active Substance: LAMOTRIGINE
     Indication: BIPOLAR DISORDER
     Dosage: UNK MG, UNK
     Route: 065
     Dates: start: 20140526
  2. LAMICTIN [Suspect]
     Active Substance: LAMOTRIGINE
     Dosage: UNK
  3. LAMICTIN [Suspect]
     Active Substance: LAMOTRIGINE
     Dosage: UNK MG, UNK

REACTIONS (2)
  - Cleft lip [Unknown]
  - Foetal exposure during pregnancy [Unknown]

NARRATIVE: CASE EVENT DATE: 201405
